FAERS Safety Report 4636398-9 (Version None)
Quarter: 2005Q2

REPORT INFORMATION
  Report Type: 
  Country: None (occurrence: None)
  Receive Date: 20050415
  Receipt Date: 20050407
  Transmission Date: 20051028
  Serious: Yes (Other)
  Sender: FDA-Public Use
  Company Number: US-JNJFOC-20050402802

PATIENT
  Sex: Female

DRUGS (4)
  1. EXTRA STRENGTH TYLENOL [Suspect]
  2. EXTRA STRENGTH TYLENOL [Suspect]
  3. EXTRA STRENGTH TYLENOL [Suspect]
     Indication: CHILLS
  4. AMOXICILLIN [Concomitant]

REACTIONS (3)
  - OEDEMA PERIPHERAL [None]
  - PRURITUS GENERALISED [None]
  - SWELLING FACE [None]
